FAERS Safety Report 7715825-4 (Version None)
Quarter: 2011Q3

REPORT INFORMATION
  Report Type: 
  Country: None (occurrence: None)
  Receive Date: 20110829
  Receipt Date: 20110829
  Transmission Date: 20111222
  Serious: Yes (Death)
  Sender: FDA-Public Use
  Company Number: None

PATIENT
  Sex: Male

DRUGS (2)
  1. LISINOPRIL [Suspect]
     Indication: HYPERTENSION
     Dosage: 10MG -1 TAB-
     Route: 048
  2. DEPAKOTE [Concomitant]
     Indication: CONVULSION
     Dosage: 7 CAP
     Route: 048

REACTIONS (3)
  - PANCREATIC NECROSIS [None]
  - SHOCK [None]
  - PANCREATITIS [None]
